FAERS Safety Report 19510133 (Version 1)
Quarter: 2021Q3

REPORT INFORMATION
  Report Type: Spontaneous
  Country: FR (occurrence: FR)
  Receive Date: 20210708
  Receipt Date: 20210708
  Transmission Date: 20211014
  Serious: Yes (Hospitalization)
  Sender: FDA-Public Use
  Company Number: FR-ELI_LILLY_AND_COMPANY-FR202106014296

PATIENT
  Age: 51 Year
  Sex: Female

DRUGS (4)
  1. TRASTUZUMAB. [Concomitant]
     Active Substance: TRASTUZUMAB
     Indication: LUNG NEOPLASM MALIGNANT
     Dosage: UNK, UNKNOWN
     Route: 065
  2. PERTUZUMAB. [Concomitant]
     Active Substance: PERTUZUMAB
     Indication: LUNG NEOPLASM MALIGNANT
     Dosage: UNK, UNKNOWN
     Route: 065
  3. PEMETREXED. [Suspect]
     Active Substance: PEMETREXED
     Indication: LUNG NEOPLASM MALIGNANT
     Dosage: UNK, UNKNOWN
     Route: 065
  4. PEMETREXED. [Suspect]
     Active Substance: PEMETREXED
     Dosage: UNK, UNKNOWN
     Route: 065
     Dates: start: 20190201

REACTIONS (8)
  - Food intolerance [Recovered/Resolved]
  - Inflammation [Recovered/Resolved]
  - Off label use [Unknown]
  - Hypoalbuminaemia [Recovered/Resolved]
  - Gastrointestinal obstruction [Recovered/Resolved]
  - Vomiting [Recovered/Resolved]
  - Fluid retention [Recovered/Resolved]
  - Toxicity to various agents [Recovered/Resolved]
